FAERS Safety Report 10150720 (Version 1)
Quarter: 2014Q2

REPORT INFORMATION
  Report Type: Spontaneous
  Country: US (occurrence: US)
  Receive Date: 20140502
  Receipt Date: 20140502
  Transmission Date: 20141212
  Serious: Yes (Other)
  Sender: FDA-Public Use
  Company Number: US-TEVA-478862USA

PATIENT
  Sex: Female
  Weight: 79.45 kg

DRUGS (4)
  1. AZILECT [Suspect]
     Indication: PARKINSON^S DISEASE
     Route: 048
  2. LOTION [Concomitant]
     Indication: MUSCLE SPASMS
  3. HUMALOG [Concomitant]
     Indication: DIABETES MELLITUS
  4. PRAVASTATIN [Concomitant]

REACTIONS (3)
  - Pneumonia [Recovered/Resolved]
  - Pneumothorax [Recovered/Resolved]
  - Anaemia [Unknown]
